FAERS Safety Report 9959668 (Version 1)
Quarter: 2014Q1

REPORT INFORMATION
  Report Type: Spontaneous
  Country: US (occurrence: None)
  Receive Date: 20140228
  Receipt Date: 20140228
  Transmission Date: 20141002
  Serious: No
  Sender: FDA-Public Use
  Company Number: None

PATIENT
  Age: 81 Year
  Sex: Female

DRUGS (1)
  1. STIVARGA [Suspect]
     Route: 048
     Dates: start: 20140108, end: 20140224

REACTIONS (4)
  - Fatigue [None]
  - Dysphonia [None]
  - Blood pressure increased [None]
  - Skin disorder [None]
